FAERS Safety Report 17965014 (Version 6)
Quarter: 2021Q3

REPORT INFORMATION
  Report Type: Report from Study
  Country: DO (occurrence: DO)
  Receive Date: 20200630
  Receipt Date: 20210731
  Transmission Date: 20211014
  Serious: Yes (Other)
  Sender: FDA-Public Use
  Company Number: NVSC2020DO068768

PATIENT
  Age: 38 Year
  Sex: Male

DRUGS (1)
  1. GILENYA [Suspect]
     Active Substance: FINGOLIMOD HYDROCHLORIDE
     Indication: RELAPSING-REMITTING MULTIPLE SCLEROSIS
     Dosage: 0.5 MG, QD
     Route: 048
     Dates: start: 20200304

REACTIONS (14)
  - Multiple sclerosis relapse [Unknown]
  - Product dose omission issue [Unknown]
  - Off label use [Unknown]
  - Lymphocyte count decreased [Unknown]
  - Rheumatoid factor positive [Unknown]
  - White blood cell count decreased [Unknown]
  - Aspartate aminotransferase increased [Unknown]
  - Alanine aminotransferase increased [Unknown]
  - Prescription drug used without a prescription [Not Recovered/Not Resolved]
  - Transaminases decreased [Unknown]
  - Limb reduction defect [Unknown]
  - Lymphopenia [Unknown]
  - Muscular weakness [Unknown]
  - Blood pressure increased [Unknown]

NARRATIVE: CASE EVENT DATE: 20200304
